FAERS Safety Report 23974315 (Version 2)
Quarter: 2024Q3

REPORT INFORMATION
  Report Type: Report from Study
  Country: CN (occurrence: CN)
  Receive Date: 20240614
  Receipt Date: 20240712
  Transmission Date: 20241017
  Serious: Yes (Hospitalization, Other)
  Sender: BAXTER
  Company Number: CN-BAXTER-2024BAX019534

PATIENT
  Age: 61 Year
  Sex: Female
  Weight: 46.2 kg

DRUGS (11)
  1. CYCLOPHOSPHAMIDE [Suspect]
     Active Substance: CYCLOPHOSPHAMIDE
     Indication: Diffuse large B-cell lymphoma stage IV
     Dosage: 782 MG, EVERY 3 WEEKS
     Route: 041
     Dates: start: 20240326, end: 20240523
  2. PREDNISONE [Suspect]
     Active Substance: PREDNISONE
     Indication: Diffuse large B-cell lymphoma stage IV
     Dosage: 100 MG, DAILY C1-6, D1-5, EVERY 1 DAYS
     Route: 048
     Dates: start: 20240325, end: 20240523
  3. VINCRISTINE [Suspect]
     Active Substance: VINCRISTINE
     Indication: Diffuse large B-cell lymphoma stage IV
     Dosage: 2 MG, EVERY 3 WEEKS
     Route: 042
     Dates: start: 20240326, end: 20240416
  4. DOXORUBICIN [Suspect]
     Active Substance: DOXORUBICIN
     Indication: Diffuse large B-cell lymphoma stage IV
     Dosage: 52 MG, EVERY 3 WEEKS
     Route: 041
     Dates: start: 20240326, end: 20240523
  5. RITUXIMAB [Suspect]
     Active Substance: RITUXIMAB
     Indication: Diffuse large B-cell lymphoma stage IV
     Dosage: 521.3 MG, EVERY 3 WEEKS
     Route: 041
     Dates: start: 20240325, end: 20240523
  6. EPCORITAMAB [Suspect]
     Active Substance: EPCORITAMAB
     Indication: Diffuse large B-cell lymphoma stage IV
     Dosage: (DRUG NOT ADMINISTERED)
     Route: 065
  7. ENTECAVIR [Concomitant]
     Active Substance: ENTECAVIR
     Indication: Hepatitis B
     Dosage: 0.5 MG, EVERY 1 DAYS
     Route: 065
     Dates: start: 20240319
  8. LACTULOSE [Concomitant]
     Active Substance: LACTULOSE
     Indication: Constipation
     Dosage: 10 ML, 3/DAYS
     Route: 065
     Dates: start: 20240409
  9. SIMETHICONE (DIMETHICONE) [Concomitant]
     Active Substance: DIMETHICONE
     Indication: Constipation
     Dosage: 0.25 ML, 3/DAYS
     Route: 065
     Dates: start: 20240415
  10. SULFAMETHOXAZOLE [Concomitant]
     Active Substance: SULFAMETHOXAZOLE
     Indication: Antifungal prophylaxis
     Dosage: 1 DOSAGE FORM, 2/DAYS
     Route: 065
     Dates: start: 20240330
  11. CEFOPERAZONE SODIUM\SULBACTAM SODIUM [Concomitant]
     Active Substance: CEFOPERAZONE SODIUM\SULBACTAM SODIUM
     Indication: Ileus
     Dosage: 1.5 MG, EVERY 1 DAYS
     Route: 065
     Dates: start: 20240417

REACTIONS (1)
  - Small intestinal perforation [Recovered/Resolved]

NARRATIVE: CASE EVENT DATE: 20240524
